FAERS Safety Report 18496994 (Version 1)
Quarter: 2020Q4

REPORT INFORMATION
  Report Type: Spontaneous
  Country: US (occurrence: US)
  Receive Date: 20201112
  Receipt Date: 20201112
  Transmission Date: 20210114
  Serious: No
  Sender: FDA-Public Use
  Company Number: US-ELI_LILLY_AND_COMPANY-US202011004705

PATIENT
  Sex: Male

DRUGS (5)
  1. INVOKAMET [Concomitant]
     Active Substance: CANAGLIFLOZIN\METFORMIN HYDROCHLORIDE
     Indication: TYPE 2 DIABETES MELLITUS
  2. TRULICITY [Suspect]
     Active Substance: DULAGLUTIDE
     Dosage: 0.7 MG, UNKNOWN
     Route: 058
  3. TRULICITY [Suspect]
     Active Substance: DULAGLUTIDE
     Indication: TYPE 2 DIABETES MELLITUS
     Dosage: 0.7 MG, UNKNOWN
     Route: 058
  4. TRULICITY [Suspect]
     Active Substance: DULAGLUTIDE
     Indication: TYPE 2 DIABETES MELLITUS
     Dosage: 0.7 MG, UNKNOWN
     Route: 058
  5. TRULICITY [Suspect]
     Active Substance: DULAGLUTIDE
     Dosage: 0.7 MG, UNKNOWN
     Route: 058

REACTIONS (2)
  - Incorrect dose administered [Unknown]
  - Injection site pain [Not Recovered/Not Resolved]
